FAERS Safety Report 13710634 (Version 1)
Quarter: 2017Q2

REPORT INFORMATION
  Report Type: Spontaneous
  Country: US (occurrence: US)
  Receive Date: 20170630
  Receipt Date: 20170630
  Transmission Date: 20170830
  Serious: Yes (Other)
  Sender: FDA-Public Use
  Company Number: None

PATIENT
  Age: 71 Year
  Sex: Female

DRUGS (1)
  1. RIVASTIGMINE. [Suspect]
     Active Substance: RIVASTIGMINE
     Indication: RESTLESS LEGS SYNDROME
     Dosage: ?          OTHER DOSE:MG;?
     Route: 048
     Dates: start: 20170629, end: 20170629

REACTIONS (1)
  - Hallucination [None]

NARRATIVE: CASE EVENT DATE: 20170629
